FAERS Safety Report 17845906 (Version 1)
Quarter: 2020Q2

REPORT INFORMATION
  Report Type: Report from Study
  Country: IT (occurrence: IT)
  Receive Date: 20200601
  Receipt Date: 20200601
  Transmission Date: 20200714
  Serious: Yes (Death)
  Sender: FDA-Public Use
  Company Number: IT-ROCHE-2612458

PATIENT
  Age: 90 Year
  Sex: Female

DRUGS (4)
  1. INSULIN [Concomitant]
     Active Substance: INSULIN NOS
  2. ENOXAPARIN [Concomitant]
     Active Substance: ENOXAPARIN
  3. TOCILIZUMAB. [Suspect]
     Active Substance: TOCILIZUMAB
     Indication: COVID-19 PNEUMONIA
     Route: 042
     Dates: start: 20200413
  4. FUROSEMIDE. [Concomitant]
     Active Substance: FUROSEMIDE

REACTIONS (1)
  - Pulmonary oedema [Fatal]

NARRATIVE: CASE EVENT DATE: 20200425
